FAERS Safety Report 26181858 (Version 1)
Quarter: 2025Q4

REPORT INFORMATION
  Report Type: Report from Study
  Country: US (occurrence: US)
  Receive Date: 20251221
  Receipt Date: 20251221
  Transmission Date: 20260118
  Serious: Yes (Other)
  Sender: ABBVIE
  Company Number: US-ABBVIE-6287310

PATIENT
  Age: 43 Year
  Sex: Female

DRUGS (2)
  1. RINVOQ [Suspect]
     Active Substance: UPADACITINIB
     Indication: Ankylosing spondylitis
     Dosage: LAST ADMIN DATE: 2025
     Route: 048
     Dates: start: 20250228
  2. PREDNISONE [Concomitant]
     Active Substance: PREDNISONE
     Indication: Product used for unknown indication
     Dates: end: 2025

REACTIONS (4)
  - Therapeutic nerve ablation [Recovered/Resolved]
  - Coccydynia [Not Recovered/Not Resolved]
  - Intervertebral disc compression [Unknown]
  - Radiculopathy [Unknown]

NARRATIVE: CASE EVENT DATE: 20250101
